FAERS Safety Report 9417780 (Version 1)
Quarter: 2013Q3

REPORT INFORMATION
  Report Type: Spontaneous
  Country: FR (occurrence: FR)
  Receive Date: 20130724
  Receipt Date: 20130724
  Transmission Date: 20140515
  Serious: Yes (Other)
  Sender: FDA-Public Use
  Company Number: FR-GLAXOSMITHKLINE-B0908281A

PATIENT
  Age: 28 Year
  Sex: Female

DRUGS (5)
  1. VENTOLINE [Suspect]
     Indication: SEASONAL ALLERGY
     Route: 065
  2. MIZOLLEN [Suspect]
     Indication: SEASONAL ALLERGY
     Route: 065
  3. NASONEX [Suspect]
     Indication: SEASONAL ALLERGY
     Route: 065
  4. OPTICRON [Suspect]
     Indication: SEASONAL ALLERGY
     Route: 065
  5. FOLIC ACID [Concomitant]
     Indication: PRODUCT USED FOR UNKNOWN INDICATION
     Route: 065

REACTIONS (2)
  - Abortion induced [Unknown]
  - Exposure during pregnancy [Unknown]
